FAERS Safety Report 22623544 (Version 1)
Quarter: 2023Q2

REPORT INFORMATION
  Report Type: Spontaneous
  Country: JP (occurrence: JP)
  Receive Date: 20230621
  Receipt Date: 20230621
  Transmission Date: 20230722
  Serious: Yes (Other)
  Sender: FDA-Public Use
  Company Number: JP-ORGANON-O2306JPN000387JAA

PATIENT
  Age: 21 Year
  Sex: Male

DRUGS (1)
  1. DESLORATADINE [Suspect]
     Active Substance: DESLORATADINE
     Indication: Pruritus
     Dosage: 5 MILLIGRAM, QD
     Route: 048
     Dates: start: 20230530, end: 20230530

REACTIONS (1)
  - Epilepsy [Unknown]

NARRATIVE: CASE EVENT DATE: 20230530
